FAERS Safety Report 24107396 (Version 1)
Quarter: 2024Q3

REPORT INFORMATION
  Report Type: Report from Study
  Country: CN (occurrence: CN)
  Receive Date: 20240718
  Receipt Date: 20240718
  Transmission Date: 20241017
  Serious: Yes (Other)
  Sender: ROCHE
  Company Number: CN-ROCHE-2596846

PATIENT
  Age: 47 Year
  Sex: Male
  Weight: 40.0 kg

DRUGS (3)
  1. AVASTIN [Suspect]
     Active Substance: BEVACIZUMAB
     Indication: Non-small cell lung cancer
     Route: 041
     Dates: start: 20170310
  2. AVASTIN [Suspect]
     Active Substance: BEVACIZUMAB
     Route: 041
     Dates: start: 20180417
  3. AVASTIN [Suspect]
     Active Substance: BEVACIZUMAB
     Route: 041
     Dates: start: 20211228

REACTIONS (12)
  - Pyrexia [Recovered/Resolved]
  - Nasopharyngitis [Recovered/Resolved]
  - Protein urine present [Unknown]
  - Pyrexia [Unknown]
  - Pneumonitis [Recovered/Resolved]
  - Coronavirus test positive [Unknown]
  - Pleural effusion [Not Recovered/Not Resolved]
  - Immobile [Unknown]
  - Cerebral radiation injury [Unknown]
  - Metastases to central nervous system [Not Recovered/Not Resolved]
  - COVID-19 pneumonia [Unknown]
  - Brain radiation necrosis [Unknown]

NARRATIVE: CASE EVENT DATE: 20171010
